FAERS Safety Report 7525431-2 (Version None)
Quarter: 2011Q2

REPORT INFORMATION
  Report Type: 
  Country: None (occurrence: None)
  Receive Date: 20110526
  Receipt Date: 20110512
  Transmission Date: 20111010
  Serious: Yes (Hospitalization)
  Sender: FDA-Public Use
  Company Number: FR-005372

PATIENT
  Age: 82 Year
  Sex: Male

DRUGS (1)
  1. FIRMAGON [Suspect]
     Indication: PRODUCT USED FOR UNKNOWN INDICATION
     Dosage: (SUBCUTANEOUS)
     Route: 058

REACTIONS (8)
  - FEELING ABNORMAL [None]
  - FATIGUE [None]
  - BLOOD TESTOSTERONE DECREASED [None]
  - DRUG TOLERANCE DECREASED [None]
  - DRUG EFFECT DECREASED [None]
  - PROSTATIC SPECIFIC ANTIGEN INCREASED [None]
  - HOT FLUSH [None]
  - HYPERKALAEMIA [None]
